FAERS Safety Report 7453359-5 (Version None)
Quarter: 2011Q2

REPORT INFORMATION
  Report Type: 
  Country: None (occurrence: None)
  Receive Date: 20110502
  Receipt Date: 20110426
  Transmission Date: 20111010
  Serious: Yes (Death, Disabling, Other)
  Sender: FDA-Public Use
  Company Number: PHHY2010JP58509

PATIENT
  Age: 72 Year
  Sex: Male

DRUGS (9)
  1. PERSANTIN [Concomitant]
     Dosage: 300 MG, UNK
     Route: 048
     Dates: start: 20100531
  2. GASMOTIN [Concomitant]
     Dosage: 15 MG, UNK
     Route: 048
     Dates: start: 20100531
  3. SUNITINIB MALATE [Concomitant]
     Indication: METASTATIC RENAL CELL CARCINOMA
     Dosage: 50 MG, UNK
     Route: 048
     Dates: start: 20100330, end: 20100412
  4. ROCALTROL [Concomitant]
     Dosage: 0.25 G, UNK
     Route: 048
     Dates: start: 20100531
  5. KREMEZIN [Concomitant]
     Dosage: 4 MG, UNK
     Route: 048
     Dates: start: 20100531
  6. PREDONINE [Concomitant]
     Dosage: 5 MG, UNK
     Route: 048
     Dates: start: 20100531
  7. AFINITOR [Suspect]
     Indication: METASTATIC RENAL CELL CARCINOMA
     Dosage: 10 MG, UNK
     Route: 048
     Dates: start: 20100713, end: 20100826
  8. ZOMETA [Concomitant]
     Indication: METASTATIC RENAL CELL CARCINOMA
     Dosage: UNK
     Route: 042
     Dates: start: 20091015
  9. ATELEC [Concomitant]
     Dosage: 10 MG, UNK
     Route: 048
     Dates: start: 20100531

REACTIONS (3)
  - NEOPLASM MALIGNANT [None]
  - PNEUMONIA [None]
  - BLOOD CREATININE INCREASED [None]
